FAERS Safety Report 6661890-5 (Version None)
Quarter: 2010Q1

REPORT INFORMATION
  Report Type: 
  Country: None (occurrence: None)
  Receive Date: 20100331
  Receipt Date: 20090915
  Transmission Date: 20100710
  Serious: Yes (Other)
  Sender: FDA-Public Use
  Company Number: US-BRISTOL-MYERS SQUIBB COMPANY-14780308

PATIENT
  Age: 68 Year
  Sex: Male
  Weight: 93 kg

DRUGS (6)
  1. ERBITUX [Suspect]
     Indication: COLORECTAL CANCER
     Dosage: INTERRUPTED ON 22JUL09 RESUMED ON 02SEP09
     Route: 042
     Dates: start: 20090708, end: 20090902
  2. ELOXATIN [Concomitant]
     Indication: COLORECTAL CANCER
  3. BENADRYL [Concomitant]
     Indication: PREMEDICATION
     Route: 042
  4. TAGAMET [Concomitant]
     Indication: PREMEDICATION
     Route: 042
  5. ALOXI [Concomitant]
     Indication: PREMEDICATION
  6. VASOTEC [Concomitant]

REACTIONS (7)
  - DYSPNOEA [None]
  - FLUSHING [None]
  - HEART RATE INCREASED [None]
  - HYPERTENSION [None]
  - HYPOTENSION [None]
  - OXYGEN SATURATION DECREASED [None]
  - TREMOR [None]
